FAERS Safety Report 8370048-3 (Version None)
Quarter: 2012Q1

REPORT INFORMATION
  Report Type: 
  Country: None (occurrence: None)
  Receive Date: 20120323
  Receipt Date: 20110620
  Transmission Date: 20120608
  Serious: Yes (Other)
  Sender: FDA-Public Use
  Company Number: 163-21880-11062673

PATIENT
  Age: 84 Year
  Sex: Female
  Weight: 67.586 kg

DRUGS (8)
  1. HYDROCHLOROTHIAZIDE [Concomitant]
  2. ATENOLOL [Concomitant]
  3. AVAPRO [Concomitant]
  4. AMLODIPINE [Concomitant]
  5. REVLIMID [Suspect]
     Indication: MULTIPLE MYELOMA
     Dosage: 15 MG, 21/7, PO
     Route: 048
     Dates: start: 20110525
  6. ASPIRIN [Concomitant]
  7. CALCIUM (CALCIUIM) [Concomitant]
  8. FLONASE [Concomitant]

REACTIONS (2)
  - ADVERSE EVENT [None]
  - BLOOD SODIUM INCREASED [None]
